FAERS Safety Report 9332914 (Version 2)
Quarter: 2013Q2

REPORT INFORMATION
  Report Type: Spontaneous
  Country: DE (occurrence: None)
  Receive Date: 20130603
  Receipt Date: 20130625
  Transmission Date: 20140414
  Serious: Yes (Other)
  Sender: FDA-Public Use
  Company Number: 2013P1006314

PATIENT
  Age: 75 Year
  Sex: Male

DRUGS (13)
  1. CEFUROXIME [Suspect]
     Indication: WOUND INFECTION BACTERIAL
     Route: 042
     Dates: start: 20130430
  2. AMLODIPINE [Concomitant]
  3. PANTOPRAZOLE [Concomitant]
  4. TAMSULOSIN [Concomitant]
  5. DIPYRONE [Concomitant]
  6. FERROUS GLYCINE SULFATE [Concomitant]
  7. OXYCODONE [Concomitant]
  8. CALCIUM CARBONATE [Concomitant]
  9. COLECALCIFEROL [Concomitant]
  10. LACTULOSE [Concomitant]
  11. MELPERONE HYDROCHLORIDE [Concomitant]
  12. ENOXAPARIN SODIUM [Concomitant]
  13. SODIUM CHLORIDE [Concomitant]

REACTIONS (1)
  - Hyponatraemia [None]
